FAERS Safety Report 4583687-2 (Version None)
Quarter: 2005Q1

REPORT INFORMATION
  Report Type: 
  Country: None (occurrence: None)
  Receive Date: 20050211
  Receipt Date: 20050203
  Transmission Date: 20050727
  Serious: Yes (Hospitalization, Other)
  Sender: FDA-Public Use
  Company Number: 028-20785-05020073

PATIENT
  Age: 78 Year
  Sex: Female

DRUGS (13)
  1. THALOMID [Suspect]
     Indication: MULTIPLE MYELOMA
     Dosage: 100 MG, QHS, ORAL; SEE IMAGE
     Dates: start: 20040428, end: 20040517
  2. THALOMID [Suspect]
     Indication: MULTIPLE MYELOMA
     Dosage: 100 MG, QHS, ORAL; SEE IMAGE
     Dates: start: 20040518, end: 20040801
  3. THALOMID [Suspect]
     Indication: MULTIPLE MYELOMA
     Dosage: 100 MG, QHS, ORAL; SEE IMAGE
     Dates: start: 20040831, end: 20041122
  4. THALOMID [Suspect]
     Indication: MULTIPLE MYELOMA
     Dosage: 100 MG, QHS, ORAL; SEE IMAGE
     Dates: start: 20041123, end: 20041208
  5. THALOMID [Suspect]
  6. DECADRON [Suspect]
     Indication: MULTIPLE MYELOMA
     Dosage: 40 MG, QD X 4 DAYS WEEKLY
     Dates: start: 20040428
  7. EPREX [Concomitant]
  8. ZOMETA [Concomitant]
  9. CELEXA [Concomitant]
  10. MORPHINE SULFATE [Concomitant]
  11. PANTOLOC (PANTROPRAZOLE SODIUM) [Concomitant]
  12. ATENOLOL [Concomitant]
  13. ARANESP [Concomitant]

REACTIONS (7)
  - DISEASE PROGRESSION [None]
  - HYPERKALAEMIA [None]
  - MULTIPLE MYELOMA [None]
  - RENAL FAILURE CHRONIC [None]
  - SOMNOLENCE [None]
  - THROMBOCYTOPENIA [None]
  - URAEMIC ENCEPHALOPATHY [None]
